FAERS Safety Report 16783455 (Version 1)
Quarter: 2019Q3

REPORT INFORMATION
  Report Type: Spontaneous
  Country: GB (occurrence: GB)
  Receive Date: 20190907
  Receipt Date: 20190907
  Transmission Date: 20191005
  Serious: Yes (Hospitalization)
  Sender: FDA-Public Use
  Company Number: GB-TEVA-2019-GB-1102670

PATIENT
  Age: 74 Year
  Sex: Male

DRUGS (6)
  1. PARAFFIN WHITE SOFT [Concomitant]
     Dosage: APPLY
     Route: 061
  2. MENTHOL. [Concomitant]
     Active Substance: MENTHOL
     Dosage: APPLY
     Route: 061
  3. FELODIPINE. [Concomitant]
     Active Substance: FELODIPINE
     Dosage: IN THE MORNING
     Route: 048
  4. TEMOZOLOMIDE. [Suspect]
     Active Substance: TEMOZOLOMIDE
     Route: 048
  5. FEXOFENADINE [Concomitant]
     Active Substance: FEXOFENADINE HYDROCHLORIDE
     Dosage: IN THE MORNING
     Route: 048
  6. PARAFFIN, LIGHT LIQUID [Concomitant]
     Dosage: APPLY
     Route: 061

REACTIONS (2)
  - Pyrexia [Unknown]
  - Rash vesicular [Recovered/Resolved with Sequelae]

NARRATIVE: CASE EVENT DATE: 20190610
